FAERS Safety Report 23577028 (Version 2)
Quarter: 2024Q1

REPORT INFORMATION
  Report Type: Report from Study
  Country: ES (occurrence: None)
  Receive Date: 20240228
  Receipt Date: 20240312
  Transmission Date: 20240410
  Serious: Yes (Hospitalization, Other)
  Sender: FDA-Public Use
  Company Number: 2024A042430

PATIENT
  Age: 58 Year
  Sex: Female
  Weight: 97 kg

DRUGS (5)
  1. BYDUREON [Suspect]
     Active Substance: EXENATIDE
     Indication: Type 2 diabetes mellitus
     Dosage: UNK
  2. INSULIN GLARGINE [Suspect]
     Active Substance: INSULIN GLARGINE
     Indication: Type 2 diabetes mellitus
     Dosage: UNK
  3. INSULIN GLARGINE [Suspect]
     Active Substance: INSULIN GLARGINE
     Indication: Type 2 diabetes mellitus
     Dosage: 72 IU, QD
     Route: 058
  4. INSULIN GLARGINE [Suspect]
     Active Substance: INSULIN GLARGINE
     Indication: Type 2 diabetes mellitus
     Dosage: 50 U, QD
     Route: 058
     Dates: start: 2017
  5. SYNJARDY [Concomitant]
     Active Substance: EMPAGLIFLOZIN\METFORMIN HYDROCHLORIDE
     Indication: Type 2 diabetes mellitus
     Dosage: UNK
     Route: 048

REACTIONS (28)
  - Blood glucose increased [Recovered/Resolved]
  - Sensation of foreign body [Recovering/Resolving]
  - Cataract [Not Recovered/Not Resolved]
  - Anxiety [Recovering/Resolving]
  - Angina pectoris [Recovering/Resolving]
  - Chest pain [Recovering/Resolving]
  - Arrhythmia [Recovering/Resolving]
  - Visual impairment [Not Recovered/Not Resolved]
  - Diabetes mellitus inadequate control [Recovering/Resolving]
  - Heart rate increased [Recovering/Resolving]
  - Tremor [Recovering/Resolving]
  - Liver disorder [Unknown]
  - Blood pressure increased [Recovering/Resolving]
  - Fear of injection [Recovered/Resolved]
  - Sleep disorder [Recovering/Resolving]
  - Chills [Recovering/Resolving]
  - Poor peripheral circulation [Unknown]
  - Claustrophobia [Recovering/Resolving]
  - Hypoglycaemia [Recovered/Resolved]
  - Weight decreased [Not Recovered/Not Resolved]
  - Abdominal discomfort [Recovered/Resolved]
  - Decreased appetite [Not Recovered/Not Resolved]
  - Vomiting [Recovered/Resolved]
  - Abdominal pain upper [Recovered/Resolved]
  - Product storage error [Unknown]
  - Fatigue [Recovered/Resolved]
  - Malaise [Unknown]
  - Dizziness [Recovered/Resolved]

NARRATIVE: CASE EVENT DATE: 20230201
